FAERS Safety Report 23261203 (Version 9)
Quarter: 2025Q2

REPORT INFORMATION
  Report Type: Spontaneous
  Country: US (occurrence: US)
  Receive Date: 20231205
  Receipt Date: 20250620
  Transmission Date: 20250716
  Serious: No
  Sender: ELI LILLY AND COMPANY
  Company Number: US-ELI_LILLY_AND_COMPANY-US202312000824

PATIENT

DRUGS (4)
  1. VERZENIO [Suspect]
     Active Substance: ABEMACICLIB
     Indication: Product used for unknown indication
     Route: 065
  2. VERZENIO [Suspect]
     Active Substance: ABEMACICLIB
     Route: 065
  3. VERZENIO [Suspect]
     Active Substance: ABEMACICLIB
     Route: 065
  4. LETROZOLE [Concomitant]
     Active Substance: LETROZOLE
     Indication: Product used for unknown indication

REACTIONS (17)
  - Drug intolerance [Recovered/Resolved]
  - Menopausal symptoms [Unknown]
  - Feeling abnormal [Recovered/Resolved]
  - Feeding disorder [Recovered/Resolved]
  - Muscular weakness [Unknown]
  - Gait inability [Unknown]
  - Hypoaesthesia [Unknown]
  - Hypoaesthesia oral [Unknown]
  - Sensory processing sensitivity [Unknown]
  - Gastrointestinal disorder [Unknown]
  - Facial pain [Unknown]
  - Arthritis [Unknown]
  - Weight decreased [Recovered/Resolved]
  - Diarrhoea [Unknown]
  - White blood cell count decreased [Unknown]
  - Asthenia [Unknown]
  - Nausea [Unknown]
